FAERS Safety Report 18460822 (Version 4)
Quarter: 2020Q4

REPORT INFORMATION
  Report Type: Spontaneous
  Country: CA (occurrence: CA)
  Receive Date: 20201104
  Receipt Date: 20201210
  Transmission Date: 20210114
  Serious: Yes (Hospitalization, Other)
  Sender: FDA-Public Use
  Company Number: CA-AKCEA THERAPEUTICS-2020IS001429

PATIENT
  Age: 62 Year
  Sex: Female
  Weight: 45.91 kg

DRUGS (13)
  1. ISSD (INTEGRATED SYRINGE SAFETY DEVICE) [Suspect]
     Active Substance: DEVICE
  2. MULTIVITAMIN ACTIVE WOMAN 55+ [Concomitant]
     Route: 048
  3. AMITRIPTYLINE [Concomitant]
     Active Substance: AMITRIPTYLINE
     Route: 048
  4. FUROSEMIDE. [Concomitant]
     Active Substance: FUROSEMIDE
  5. CODEINE [Concomitant]
     Active Substance: CODEINE
     Route: 048
  6. FUROSEMIDE. [Concomitant]
     Active Substance: FUROSEMIDE
  7. TEGSEDI [Suspect]
     Active Substance: INOTERSEN SODIUM
     Route: 058
  8. TURMERIC /01079602/ [Concomitant]
     Active Substance: HERBALS\TURMERIC
     Route: 048
  9. TEA, GREEN [Concomitant]
     Active Substance: GREEN TEA LEAF
     Route: 048
  10. BISOPROLOL [Concomitant]
     Active Substance: BISOPROLOL
     Route: 048
  11. FUROSEMIDE. [Concomitant]
     Active Substance: FUROSEMIDE
     Route: 048
  12. TEGSEDI [Suspect]
     Active Substance: INOTERSEN SODIUM
     Indication: HEREDITARY NEUROPATHIC AMYLOIDOSIS
     Route: 058
     Dates: start: 20190211
  13. TEGSEDI [Suspect]
     Active Substance: INOTERSEN SODIUM
     Route: 058

REACTIONS (6)
  - Fatigue [Unknown]
  - Heart rate increased [Unknown]
  - Contusion [Unknown]
  - Pain [Unknown]
  - Gastrointestinal disorder [Not Recovered/Not Resolved]
  - Lower respiratory tract infection bacterial [Recovered/Resolved]

NARRATIVE: CASE EVENT DATE: 202008
